FAERS Safety Report 9410017 (Version 2)
Quarter: 2013Q3

REPORT INFORMATION
  Report Type: Spontaneous
  Country: US (occurrence: US)
  Receive Date: 20130719
  Receipt Date: 20130725
  Transmission Date: 20140515
  Serious: Yes (Hospitalization)
  Sender: FDA-Public Use
  Company Number: US-ASTRAZENECA-2010SE54614

PATIENT
  Age: 59 Year
  Sex: Female

DRUGS (14)
  1. ACCOLATE [Suspect]
     Indication: ASTHMA
     Route: 048
  2. ACCOLATE [Suspect]
     Indication: MULTIPLE ALLERGIES
     Route: 048
  3. ACCOLATE [Suspect]
     Indication: ASTHMA
     Route: 048
  4. ACCOLATE [Suspect]
     Indication: MULTIPLE ALLERGIES
     Route: 048
  5. SHINGLE SHOT [Concomitant]
     Dosage: YEAR
  6. ALLERGY SHOT [Concomitant]
     Dosage: YEAR
  7. FLU SHOT [Concomitant]
     Dosage: YEAR
  8. CITALOPRAM [Concomitant]
     Indication: MENOPAUSE
     Route: 048
     Dates: start: 2009
  9. CITALOPRAM [Concomitant]
     Indication: DEPRESSION
     Route: 048
     Dates: start: 2009
  10. CITALOPRAM [Concomitant]
     Indication: HORMONE LEVEL ABNORMAL
     Route: 048
     Dates: start: 2009
  11. ALBUTEROL INHALER [Concomitant]
     Indication: ASTHMA
     Dosage: 0.083 EVERY FOUR HOURS
     Route: 055
  12. ALBUTEROL SOLUTION [Concomitant]
     Indication: INHALATION THERAPY
     Dosage: TWO PUFFS PRN
     Route: 055
  13. LEVOXYL [Concomitant]
     Indication: HYPOTHYROIDISM
     Route: 048
     Dates: start: 1993
  14. CELEBREX [Concomitant]

REACTIONS (11)
  - Asthma [Unknown]
  - Asthma [Unknown]
  - Osteoporosis [Unknown]
  - Osteoarthritis [Unknown]
  - Osteopenia [Unknown]
  - Dyspnoea [Unknown]
  - Increased bronchial secretion [Unknown]
  - Menopausal depression [Unknown]
  - Infection [Unknown]
  - Intentional drug misuse [Unknown]
  - Drug ineffective [Unknown]
